FAERS Safety Report 5883920-0 (Version None)
Quarter: 2008Q3

REPORT INFORMATION
  Report Type: 
  Country: None (occurrence: None)
  Receive Date: 20080915
  Receipt Date: 20080909
  Transmission Date: 20090109
  Serious: Yes (Life-Threatening, Hospitalization)
  Sender: FDA-Public Use
  Company Number: B0531727A

PATIENT
  Age: 24 Year
  Sex: Female
  Weight: 42 kg

DRUGS (14)
  1. FLOLAN [Suspect]
     Indication: PULMONARY ARTERIAL HYPERTENSION
     Route: 042
     Dates: start: 20060618
  2. WARFARIN SODIUM [Concomitant]
     Indication: PULMONARY ARTERIAL HYPERTENSION
     Dosage: 2MG PER DAY
     Route: 048
  3. FUROSEMIDE [Concomitant]
     Indication: CARDIAC FAILURE
     Dosage: 20MG PER DAY
     Route: 048
  4. NIFEDIPINE [Concomitant]
     Indication: PULMONARY ARTERIAL HYPERTENSION
     Dosage: 40MG PER DAY
     Route: 048
  5. TRACLEER [Concomitant]
     Indication: PULMONARY ARTERIAL HYPERTENSION
     Dosage: 250MG PER DAY
     Route: 048
  6. ACARDI [Concomitant]
     Indication: CARDIAC FAILURE
     Dosage: 2.5MG PER DAY
     Route: 048
     Dates: start: 20060724
  7. UNKNOWN DRUG [Concomitant]
     Indication: CARDIAC FAILURE
     Route: 042
     Dates: start: 20060614, end: 20060621
  8. DOBUTREX [Concomitant]
     Indication: CARDIAC FAILURE
     Route: 042
     Dates: start: 20060614, end: 20060702
  9. CEFAMEZIN [Concomitant]
     Indication: PROPHYLAXIS
     Dosage: 2G PER DAY
     Dates: start: 20060614, end: 20060627
  10. ZANTAC [Concomitant]
     Indication: PROPHYLAXIS
     Dosage: 200MG PER DAY
     Dates: start: 20060618, end: 20060623
  11. DIGOXIN [Concomitant]
     Indication: CARDIAC FAILURE
     Dosage: .1MG PER DAY
     Route: 048
     Dates: start: 20070813
  12. ADONA (AC-17) [Concomitant]
     Dosage: 100MG PER DAY
     Dates: start: 20070728, end: 20070729
  13. TRANSAMIN [Concomitant]
     Dosage: 1G PER DAY
     Dates: start: 20070728, end: 20070729
  14. VIAGRA [Concomitant]
     Indication: PULMONARY ARTERIAL HYPERTENSION
     Dosage: 50MG PER DAY
     Route: 048
     Dates: start: 20070902

REACTIONS (2)
  - HAEMOPTYSIS [None]
  - HYPOXIA [None]
